FAERS Safety Report 8334333-3 (Version None)
Quarter: 2012Q1

REPORT INFORMATION
  Report Type: 
  Country: None (occurrence: None)
  Receive Date: 20120329
  Receipt Date: 20110804
  Transmission Date: 20120608
  Serious: Yes (Life-Threatening, Other)
  Sender: FDA-Public Use
  Company Number: WAES 1108USA00735

PATIENT
  Age: 30 Year
  Sex: Male

DRUGS (2)
  1. FOSAPREPITANT DIMEGLUMINE [Suspect]
     Indication: PROPHYLAXIS OF NAUSEA AND VOMITING
     Dosage: 150 MG/1X/IV
     Route: 042
  2. BLEOMYCIN (+) CISPLATIN (+) ETOP [Concomitant]

REACTIONS (2)
  - ANAPHYLACTIC REACTION [None]
  - HYPERSENSITIVITY [None]
